FAERS Safety Report 8603686 (Version 5)
Quarter: 2012Q4

REPORT INFORMATION
  Report Type: 
  Country: GB (occurrence: GB)
  Receive Date: 20120607
  Receipt Date: 20121015
  Transmission Date: 20130627
  Serious: Yes (Death)
  Sender: FDA-Public Use
  Company Number: GB-MYLANLABS-2012S1010794

PATIENT
  Age: 40 Year
  Sex: Male
  Weight: 104 kg

DRUGS (13)
  1. CLARITHROMYCIN [Suspect]
     Indication: LOWER RESPIRATORY TRACT INFECTION
     Route: 048
     Dates: start: 20111028
  2. METHADONE [Suspect]
     Indication: PAIN
     Route: 048
     Dates: start: 20111025, end: 20111030
  3. HUMIRA [Suspect]
     Indication: CROHN^S DISEASE
     Route: 058
     Dates: start: 20111005, end: 20101019
  4. ORAMORPH [Concomitant]
     Indication: PAIN
     Route: 048
     Dates: start: 201102, end: 20111025
  5. ADCAL D3 [Concomitant]
     Indication: CROHN^S DISEASE
     Route: 048
     Dates: start: 20110808
  6. DIAZEPAM [Concomitant]
     Indication: ANXIETY
     Route: 048
     Dates: start: 20111019
  7. LANSOPRAZOLE [Concomitant]
     Indication: GASTRITIS
     Route: 048
     Dates: start: 20070219
  8. VENTOLIN [Concomitant]
     Indication: PRODUCT USED FOR UNKNOWN INDICATION
  9. MULTIVITAMIN [Concomitant]
     Indication: PRODUCT USED FOR UNKNOWN INDICATION
  10. ASCORBIC ACID [Concomitant]
     Indication: PRODUCT USED FOR UNKNOWN INDICATION
     Route: 048
     Dates: start: 20111006
  11. HYDROXOCOBALAMIN [Concomitant]
     Indication: VITAMIN D DEFICIENCY
  12. MST CONTINUS [Concomitant]
     Indication: PAIN
     Route: 048
  13. PARACETAMOL [Concomitant]
     Indication: PAIN

REACTIONS (25)
  - Inhibitory drug interaction [Not Recovered/Not Resolved]
  - Blood urine [Unknown]
  - Crohn^s disease [Unknown]
  - Dysuria [Unknown]
  - Diffuse alveolar damage [Fatal]
  - Somnolence [Unknown]
  - Malaise [Unknown]
  - Headache [Unknown]
  - Heart rate increased [Unknown]
  - Hiccups [Unknown]
  - Toxicity to various agents [Fatal]
  - Tremor [Unknown]
  - Dysarthria [Unknown]
  - Hyperhidrosis [Unknown]
  - Vomiting [Unknown]
  - Diplopia [Unknown]
  - Vision blurred [Unknown]
  - Chest pain [Unknown]
  - Dizziness [Unknown]
  - Upper respiratory tract infection [Unknown]
  - Aggression [Unknown]
  - Confusional state [Unknown]
  - Pain [Unknown]
  - Immunosuppression [Unknown]
  - Incorrect dose administered [Unknown]
